FAERS Safety Report 23782430 (Version 1)
Quarter: 2024Q2

REPORT INFORMATION
  Report Type: Spontaneous
  Country: HU (occurrence: HU)
  Receive Date: 20240425
  Receipt Date: 20240425
  Transmission Date: 20240716
  Serious: Yes (Other)
  Sender: FDA-Public Use
  Company Number: HU-SUN PHARMACEUTICAL INDUSTRIES LTD-2024RR-443727

PATIENT
  Sex: Female

DRUGS (5)
  1. PANTOPRAZOLE [Suspect]
     Active Substance: PANTOPRAZOLE
     Indication: Product used for unknown indication
     Dosage: 40 MG, QD (1X, ON AN EMPTY STOMACH IN THE MORNING)
     Route: 065
     Dates: start: 20230216, end: 20230308
  2. KISQALI [Suspect]
     Active Substance: RIBOCICLIB
     Indication: Metastases to bone
     Dosage: 2 DOSAGE FORM, QD
     Route: 065
  3. KISQALI [Suspect]
     Active Substance: RIBOCICLIB
     Indication: Breast neoplasm
     Dosage: 600 MG, QD (3 TABLETS)
     Route: 048
  4. KISQALI [Suspect]
     Active Substance: RIBOCICLIB
     Dosage: 600 MILLIGRAM
     Route: 065
     Dates: start: 20230119
  5. LETROZOLE [Suspect]
     Active Substance: LETROZOLE
     Indication: Product used for unknown indication
     Dosage: 2.5 MILLIGRAM, DAILY
     Route: 065

REACTIONS (5)
  - Leukopenia [Unknown]
  - Electrocardiogram QT prolonged [Unknown]
  - Liver function test increased [Unknown]
  - Hepatic enzyme increased [Unknown]
  - Hypergastrinaemia [Unknown]

NARRATIVE: CASE EVENT DATE: 20230314
